FAERS Safety Report 16251896 (Version 2)
Quarter: 2019Q4

REPORT INFORMATION
  Report Type: Spontaneous
  Country: JP (occurrence: JP)
  Receive Date: 20190429
  Receipt Date: 20191107
  Transmission Date: 20200122
  Serious: Yes (Other)
  Sender: FDA-Public Use
  Company Number: JP-PFIZER INC-2019163669

PATIENT
  Age: 81 Year
  Sex: Female

DRUGS (2)
  1. JZOLOFT 50MG [Suspect]
     Active Substance: SERTRALINE HYDROCHLORIDE
     Dosage: 25 MG, UNK
  2. JZOLOFT 50MG [Suspect]
     Active Substance: SERTRALINE HYDROCHLORIDE
     Dosage: 50 MG, DAILY
     Route: 048

REACTIONS (3)
  - Mental impairment [Unknown]
  - Fall [Unknown]
  - Communication disorder [Unknown]
